FAERS Safety Report 7196745 (Version 7)
Quarter: 2014Q1

REPORT INFORMATION
  Report Type: Spontaneous
  Country: US (occurrence: US)
  Receive Date: 20091202
  Receipt Date: 20140121
  Transmission Date: 20141002
  Serious: Yes (Other)
  Sender: FDA-Public Use
  Company Number: US-BAYER-200941441NA

PATIENT
  Age: 26 Year
  Sex: Female
  Weight: 80 kg

DRUGS (6)
  1. YAZ [Suspect]
     Indication: ORAL CONTRACEPTION
     Dosage: UNK
     Route: 048
     Dates: start: 2004, end: 20080515
  2. YASMIN [Suspect]
     Dosage: UNK
  3. VITOR M [Concomitant]
  4. NORETHINDRONE [Concomitant]
     Indication: PRODUCT USED FOR UNKNOWN INDICATION
     Dosage: UNK UNK, QD
  5. NEXIUM [Concomitant]
     Dosage: 40 MG, UNK
     Route: 048
     Dates: end: 20080520
  6. PRENATAL VITAMINS [VIT C,VIT H,MIN NOS,VIT PP,RETINOL,VIT E,VIT B [Concomitant]

REACTIONS (8)
  - Cholecystitis chronic [None]
  - Abdominal pain upper [None]
  - Nausea [None]
  - Vomiting [None]
  - Dyspepsia [None]
  - Diarrhoea [None]
  - Biliary dyskinesia [Unknown]
  - Umbilical hernia [Unknown]
